FAERS Safety Report 14822162 (Version 1)
Quarter: 2018Q2

REPORT INFORMATION
  Report Type: Spontaneous
  Country: GB (occurrence: GB)
  Receive Date: 20180427
  Receipt Date: 20180427
  Transmission Date: 20180711
  Serious: Yes (Hospitalization, Other)
  Sender: FDA-Public Use
  Company Number: GB-ABBVIE-18P-167-2333848-00

PATIENT
  Age: 82 Year
  Sex: Female
  Weight: 55 kg

DRUGS (27)
  1. VENETOCLAX. [Suspect]
     Active Substance: VENETOCLAX
     Indication: PLASMA CELL MYELOMA
     Route: 048
     Dates: start: 20170630, end: 20171026
  2. VELCADE [Suspect]
     Active Substance: BORTEZOMIB
     Indication: PLASMA CELL MYELOMA
     Dosage: DOSAGE FORM: LYOPHILIZED POWDER
     Route: 058
     Dates: start: 20170217
  3. BORTEZOMIB [Suspect]
     Active Substance: BORTEZOMIB
     Dosage: DOSAGE FORM: LYOPHILIZED POWDER
     Route: 058
     Dates: start: 20170211, end: 20170309
  4. AMLODIPINE BESYLATE. [Concomitant]
     Active Substance: AMLODIPINE BESYLATE
     Indication: PRODUCT USED FOR UNKNOWN INDICATION
     Dosage: UNK
     Route: 065
     Dates: start: 20161102
  5. VENETOCLAX. [Suspect]
     Active Substance: VENETOCLAX
     Indication: PLASMA CELL MYELOMA
     Route: 048
     Dates: start: 20170211, end: 20170309
  6. FUROSEMIDE. [Concomitant]
     Active Substance: FUROSEMIDE
     Indication: PRODUCT USED FOR UNKNOWN INDICATION
     Dosage: 40 MG
     Route: 065
  7. DEXAMETHASONE. [Suspect]
     Active Substance: DEXAMETHASONE
     Indication: PLASMA CELL MYELOMA
     Dosage: UNK
     Route: 048
  8. BORTEZOMIB [Suspect]
     Active Substance: BORTEZOMIB
     Indication: PLASMA CELL MYELOMA
     Dosage: UNK UNK, QD
     Route: 058
     Dates: start: 20170331, end: 20170607
  9. CALCICHEW [Concomitant]
     Active Substance: CALCIUM CARBONATE
     Indication: PRODUCT USED FOR UNKNOWN INDICATION
     Dosage: 1 DF
     Route: 065
     Dates: start: 20101202
  10. DEXAMETHASONE. [Suspect]
     Active Substance: DEXAMETHASONE
     Indication: PLASMA CELL MYELOMA
     Dosage: 8 MG, QD
     Route: 048
     Dates: end: 20170630
  11. DEXAMETHASONE. [Suspect]
     Active Substance: DEXAMETHASONE
     Indication: PLASMA CELL MYELOMA
     Route: 048
     Dates: start: 20170217, end: 20170228
  12. VELCADE [Suspect]
     Active Substance: BORTEZOMIB
     Indication: PLASMA CELL MYELOMA
     Dosage: DOSAGE FORM: LYOPHILIZED POWDER
     Route: 058
     Dates: end: 20170630
  13. LANSOPRAZOLE. [Concomitant]
     Active Substance: LANSOPRAZOLE
     Indication: PRODUCT USED FOR UNKNOWN INDICATION
     Dosage: UNK
     Route: 065
  14. DOMPERIDONE [Concomitant]
     Active Substance: DOMPERIDONE
     Indication: NAUSEA
     Dosage: UNK
     Route: 065
     Dates: start: 20170109
  15. OXYBUTYNIN. [Concomitant]
     Active Substance: OXYBUTYNIN CHLORIDE
     Indication: PRODUCT USED FOR UNKNOWN INDICATION
     Dosage: UNK
     Route: 065
     Dates: start: 20160602
  16. BORTEZOMIB [Suspect]
     Active Substance: BORTEZOMIB
     Indication: PLASMA CELL MYELOMA
     Dosage: DOSAGE FORM: LYOPHILIZED POWDER
     Route: 058
     Dates: start: 20170630
  17. ASPIRIN. [Concomitant]
     Active Substance: ASPIRIN
     Indication: PRODUCT USED FOR UNKNOWN INDICATION
     Dosage: UNK
     Route: 065
     Dates: start: 20150529
  18. VENETOCLAX. [Suspect]
     Active Substance: VENETOCLAX
     Indication: PLASMA CELL MYELOMA
     Route: 048
     Dates: start: 20170106, end: 20170124
  19. DEXAMETHASONE. [Suspect]
     Active Substance: DEXAMETHASONE
     Indication: PLASMA CELL MYELOMA
     Dosage: 8 MG, QD
     Route: 048
     Dates: start: 20170512, end: 20170613
  20. BORTEZOMIB [Suspect]
     Active Substance: BORTEZOMIB
     Indication: PLASMA CELL MYELOMA
     Dosage: UNK UNK, QD
     Route: 058
     Dates: start: 20170106, end: 20170124
  21. VENETOCLAX. [Suspect]
     Active Substance: VENETOCLAX
     Indication: PLASMA CELL MYELOMA
     Route: 048
     Dates: start: 20171110
  22. DEXAMETHASONE. [Suspect]
     Active Substance: DEXAMETHASONE
     Indication: PLASMA CELL MYELOMA
     Dosage: 12 MG, QD
     Route: 048
     Dates: start: 20170407, end: 20170429
  23. ERYTHROPOIETIN [Concomitant]
     Active Substance: ERYTHROPOIETIN
     Indication: PRODUCT USED FOR UNKNOWN INDICATION
     Dosage: UNK
     Route: 065
  24. GABAPENTIN. [Concomitant]
     Active Substance: GABAPENTIN
     Indication: PRODUCT USED FOR UNKNOWN INDICATION
     Dosage: UNK
     Route: 065
     Dates: start: 20161117
  25. VENETOCLAX. [Suspect]
     Active Substance: VENETOCLAX
     Indication: PLASMA CELL MYELOMA
     Route: 048
     Dates: start: 20170331, end: 20170607
  26. DEXAMETHASONE. [Suspect]
     Active Substance: DEXAMETHASONE
     Indication: PLASMA CELL MYELOMA
     Dosage: 20 MG, QD
     Route: 048
     Dates: start: 20170106, end: 20170117
  27. DOXAZOSIN [Concomitant]
     Active Substance: DOXAZOSIN\DOXAZOSIN MESYLATE
     Indication: PRODUCT USED FOR UNKNOWN INDICATION
     Dosage: UNK
     Route: 065
     Dates: start: 20080211

REACTIONS (2)
  - Lower respiratory tract infection [Recovered/Resolved]
  - Infection [Not Recovered/Not Resolved]

NARRATIVE: CASE EVENT DATE: 20170202
